FAERS Safety Report 6451756-8 (Version None)
Quarter: 2009Q4

REPORT INFORMATION
  Report Type: 
  Country: None (occurrence: None)
  Receive Date: 20091123
  Receipt Date: 20091113
  Transmission Date: 20100525
  Serious: Yes (Hospitalization)
  Sender: FDA-Public Use
  Company Number: JP-ABBOTT-09P-087-0588629-00

PATIENT
  Sex: Female

DRUGS (8)
  1. HUMIRA [Suspect]
     Indication: RHEUMATOID ARTHRITIS
     Route: 058
     Dates: start: 20090421, end: 20091023
  2. PREDNISOLONE [Concomitant]
     Indication: RHEUMATOID ARTHRITIS
     Dosage: 20MG DAILY
     Route: 048
     Dates: end: 20090507
  3. PREDNISOLONE [Concomitant]
     Indication: INTERSTITIAL LUNG DISEASE
     Dosage: 15MG DAILY
     Dates: start: 20090508, end: 20090702
  4. PREDNISOLONE [Concomitant]
     Dosage: 10MG DAILY
     Route: 048
     Dates: start: 20090703, end: 20090813
  5. PREDNISOLONE [Concomitant]
     Dosage: 5MG DAILY
     Route: 048
     Dates: start: 20090814, end: 20090820
  6. ALENDRONATE SODIUM [Concomitant]
     Indication: DRUG USE FOR UNKNOWN INDICATION
     Dosage: WEEKLY
     Dates: start: 20090604
  7. DICLOFENAC SODIUM [Concomitant]
     Indication: RHEUMATOID ARTHRITIS
     Dosage: 37.5MG DAILY
     Dates: start: 20090925, end: 20091023
  8. TEPRENONE [Concomitant]
     Indication: GASTRITIS PROPHYLAXIS
     Dosage: 50MG DAILY
     Dates: start: 20090925, end: 20091023

REACTIONS (2)
  - FALL [None]
  - PELVIC FRACTURE [None]
